FAERS Safety Report 12573864 (Version 4)
Quarter: 2016Q3

REPORT INFORMATION
  Report Type: Report from Study
  Country: IT (occurrence: IT)
  Receive Date: 20160720
  Receipt Date: 20160902
  Transmission Date: 20161109
  Serious: Yes (Life-Threatening)
  Sender: FDA-Public Use
  Company Number: IT-PFIZER INC-2016340997

PATIENT
  Age: 51 Year
  Sex: Male
  Weight: 64 kg

DRUGS (6)
  1. ERBITUX [Suspect]
     Active Substance: CETUXIMAB
     Indication: TONGUE CANCER RECURRENT
     Dosage: 400MG/M2 FIRST ADMINISTRATION AND 250MG/M2 SECOND ADMINISTRATION
     Dates: start: 20160616, end: 20160623
  2. ONDANSETRON [Concomitant]
     Active Substance: ONDANSETRON
     Dosage: 8 MG, UNK
     Route: 042
     Dates: start: 20160616, end: 20160616
  3. LONQUEX [Concomitant]
     Active Substance: LIPEGFILGRASTIM
     Dosage: UNK
     Route: 058
     Dates: start: 20160618, end: 20160618
  4. CARBOPLATINO PFIZER ITALIA [Suspect]
     Active Substance: CARBOPLATIN
     Indication: TONGUE CANCER RECURRENT
     Dosage: 500 MG, UNK
     Route: 042
     Dates: start: 20160616, end: 20160616
  5. FLUOROURACIL TEVA [Suspect]
     Active Substance: FLUOROURACIL
     Indication: TONGUE CANCER RECURRENT
     Dosage: 1000 MG/M2, CYCLIC (DAY 1-4, TOTAL DOSE 600 MG)
     Route: 042
     Dates: start: 20160616, end: 20160618
  6. SOLDESAM [Concomitant]
     Active Substance: DEXAMETHASONE
     Dosage: 20 MG, UNK
     Route: 042
     Dates: start: 20160616, end: 20160616

REACTIONS (4)
  - Febrile bone marrow aplasia [Not Recovered/Not Resolved]
  - Medication error [Not Recovered/Not Resolved]
  - Mucosal inflammation [Not Recovered/Not Resolved]
  - Pyrexia [Not Recovered/Not Resolved]

NARRATIVE: CASE EVENT DATE: 20160624
